FAERS Safety Report 7261597-X (Version None)
Quarter: 2011Q1

REPORT INFORMATION
  Report Type: 
  Country: None (occurrence: None)
  Receive Date: 20110130
  Receipt Date: 20101002
  Transmission Date: 20110831
  Serious: No
  Sender: FDA-Public Use
  Company Number: US-ABBOTT-10P-163-0675340-00

PATIENT
  Sex: Female

DRUGS (3)
  1. HUMIRA [Suspect]
     Indication: CROHN'S DISEASE
     Dosage: 160 MG LOADING DOSE
     Dates: start: 20101001, end: 20101001
  2. HUMIRA [Suspect]
     Dosage: 80MG LOADING DOSE
     Dates: start: 20101002, end: 20101002
  3. HUMIRA [Suspect]

REACTIONS (1)
  - OVERDOSE [None]
